FAERS Safety Report 8780374 (Version 1)
Quarter: 2012Q4

REPORT INFORMATION
  Report Type: Spontaneous
  Country: US (occurrence: None)
  Receive Date: 20120905
  Receipt Date: 20120905
  Transmission Date: 20130627
  Serious: Yes (Other)
  Sender: FDA-Public Use
  Company Number: None

PATIENT
  Age: 40 Year
  Sex: Female
  Weight: 83.92 kg

DRUGS (1)
  1. ZOLPIDEM [Suspect]
     Indication: SLEEP DISORDER
     Dosage: 12.5 1 po
     Route: 048
     Dates: start: 20120829, end: 20120829

REACTIONS (3)
  - Road traffic accident [None]
  - Amnesia [None]
  - Feeling abnormal [None]
